FAERS Safety Report 7711025-2 (Version None)
Quarter: 2011Q3

REPORT INFORMATION
  Report Type: 
  Country: None (occurrence: None)
  Receive Date: 20110825
  Receipt Date: 20110812
  Transmission Date: 20111222
  Serious: Yes (Death, Other)
  Sender: FDA-Public Use
  Company Number: DE-MYLANLABS-2011S1017268

PATIENT
  Age: 2 Decade
  Sex: Male

DRUGS (3)
  1. OXALIPLATIN [Suspect]
     Indication: PRIMITIVE NEUROECTODERMAL TUMOUR METASTATIC
     Dosage: 85 MG/M2/2H IN 250ML GLUCOSE 5%
     Route: 042
  2. GEMCITABINE [Suspect]
     Indication: PRIMITIVE NEUROECTODERMAL TUMOUR METASTATIC
     Dosage: 1000 MG/M2/30MIN
     Route: 042
  3. IRINOTECAN HCL [Suspect]
     Indication: PRIMITIVE NEUROECTODERMAL TUMOUR METASTATIC
     Dosage: 175 MG/M2/2H
     Route: 042

REACTIONS (3)
  - C-REACTIVE PROTEIN INCREASED [None]
  - HAEMATOTOXICITY [None]
  - DISEASE PROGRESSION [None]
